FAERS Safety Report 10131169 (Version 3)
Quarter: 2014Q2

REPORT INFORMATION
  Report Type: Spontaneous
  Country: JP (occurrence: JP)
  Receive Date: 20140428
  Receipt Date: 20140520
  Transmission Date: 20141212
  Serious: Yes (Hospitalization)
  Sender: FDA-Public Use
  Company Number: JP-JNJFOC-20140317823

PATIENT
  Age: 78 Year
  Sex: Female

DRUGS (1)
  1. TRAMCET [Suspect]
     Indication: ARTHRALGIA
     Route: 048
     Dates: start: 20140318, end: 20140319

REACTIONS (5)
  - Nausea [Recovering/Resolving]
  - Vomiting [Recovering/Resolving]
  - Anxiety [Unknown]
  - Abdominal distension [Recovering/Resolving]
  - Decreased appetite [Recovering/Resolving]
